FAERS Safety Report 9085170 (Version 1)
Quarter: 2013Q1

REPORT INFORMATION
  Report Type: Spontaneous
  Country: US (occurrence: US)
  Receive Date: 20130131
  Receipt Date: 20130131
  Transmission Date: 20140127
  Serious: No
  Sender: FDA-Public Use
  Company Number: US-PFIZER INC-2013037447

PATIENT
  Age: 4 Year
  Sex: Female

DRUGS (1)
  1. CHILDRENS ADVIL [Suspect]
     Dosage: UNK

REACTIONS (2)
  - Expired drug administered [Unknown]
  - Hypersensitivity [Unknown]
